FAERS Safety Report 4953770-8 (Version None)
Quarter: 2006Q1

REPORT INFORMATION
  Report Type: 
  Country: None (occurrence: None)
  Receive Date: 20060321
  Receipt Date: 20060313
  Transmission Date: 20060701
  Serious: Yes (Hospitalization)
  Sender: FDA-Public Use
  Company Number: 222915

PATIENT
  Age: 52 Year
  Sex: Male
  Weight: 102 kg

DRUGS (7)
  1. ERLOTINIB (ERLOTINIB) TABLET [Suspect]
     Indication: SQUAMOUS CELL CARCINOMA
     Dosage: 10 MG, QD, ORAL
     Route: 048
  2. AVASTIN [Suspect]
     Indication: SQUAMOUS CELL CARCINOMA
     Dosage: 10 MG/KG, Q2W, INTRAVENOUS
     Route: 042
     Dates: start: 20060220
  3. CISPLATIN [Concomitant]
  4. RADIOTHERAPY (RADIATION THERAPY) [Concomitant]
  5. CIPROFLOXACIN [Concomitant]
  6. OXYCODONE (OXYCODONE) [Concomitant]
  7. MIRALAX [Concomitant]

REACTIONS (11)
  - ACTIVATED PARTIAL THROMBOPLASTIN TIME PROLONGED [None]
  - BLOOD BILIRUBIN DECREASED [None]
  - BLOOD CALCIUM DECREASED [None]
  - HAEMATOCRIT DECREASED [None]
  - HAEMOGLOBIN DECREASED [None]
  - HYPOTENSION [None]
  - LEUKOCYTOCLASTIC VASCULITIS [None]
  - ORTHOSTATIC INTOLERANCE [None]
  - PLATELET COUNT DECREASED [None]
  - SYNCOPE [None]
  - WHITE BLOOD CELL COUNT INCREASED [None]
